FAERS Safety Report 9200581 (Version 1)
Quarter: 2013Q1

REPORT INFORMATION
  Report Type: Spontaneous
  Country: US (occurrence: US)
  Receive Date: 20130329
  Receipt Date: 20130329
  Transmission Date: 20140127
  Serious: No
  Sender: FDA-Public Use
  Company Number: US-PFIZER INC-2004087582

PATIENT
  Age: 72 Year
  Sex: Female

DRUGS (5)
  1. MOTRIN MIGRAINE PAIN [Suspect]
     Indication: ORAL PAIN
     Dosage: 800 MG, 1 IN ONE DAY
     Route: 048
     Dates: start: 20040601, end: 20040601
  2. MOTRIN MIGRAINE PAIN [Suspect]
     Dosage: 400 MG, 1 IN ONE DAY
     Route: 048
     Dates: start: 20040602, end: 20040602
  3. BENZYLPENICILLIN SODIUM [Concomitant]
     Dosage: UNK
     Route: 048
  4. OMEPRAZOLE [Concomitant]
     Dosage: UNK
     Route: 048
  5. MYLANTA [Concomitant]
     Dosage: UNK
     Route: 048

REACTIONS (3)
  - Condition aggravated [Not Recovered/Not Resolved]
  - Dyspepsia [Not Recovered/Not Resolved]
  - Gastrooesophageal reflux disease [Not Recovered/Not Resolved]
